FAERS Safety Report 16331128 (Version 1)
Quarter: 2019Q2

REPORT INFORMATION
  Report Type: Spontaneous
  Country: US (occurrence: US)
  Receive Date: 20190517
  Receipt Date: 20190517
  Transmission Date: 20190711
  Serious: Yes (Hospitalization)
  Sender: FDA-Public Use
  Company Number: None

PATIENT
  Age: 66 Year
  Sex: Male

DRUGS (18)
  1. SILDENAFIL. [Suspect]
     Active Substance: SILDENAFIL
     Indication: PULMONARY HYPERTENSION
     Route: 048
     Dates: start: 20121226
  2. ASPIRIN. [Concomitant]
     Active Substance: ASPIRIN
  3. LOPRESSOR [Concomitant]
     Active Substance: METOPROLOL TARTRATE
  4. MECLIZINE [Concomitant]
     Active Substance: MECLIZINE HYDROCHLORIDE
  5. MAGNESIUM [Concomitant]
     Active Substance: MAGNESIUM
  6. MULTI VITAMIN [Concomitant]
     Active Substance: VITAMINS
  7. COLCRYS [Concomitant]
     Active Substance: COLCHICINE
  8. VITAMIN D3 [Concomitant]
     Active Substance: CHOLECALCIFEROL
  9. GLUCOSAMINE [Concomitant]
     Active Substance: GLUCOSAMINE
  10. LASIX [Concomitant]
     Active Substance: FUROSEMIDE
  11. ALLEGRA-D [Concomitant]
     Active Substance: FEXOFENADINE\PSEUDOEPHEDRINE
  12. VITAMIN B12 [Concomitant]
     Active Substance: CYANOCOBALAMIN
  13. ALDACTONE [Concomitant]
     Active Substance: SPIRONOLACTONE
  14. ACETAMINOPHN [Concomitant]
  15. ALLOPURINOL. [Concomitant]
     Active Substance: ALLOPURINOL
  16. FISH OIL [Concomitant]
     Active Substance: FISH OIL
  17. WARFARIN [Concomitant]
     Active Substance: WARFARIN
  18. ZOCOR [Concomitant]
     Active Substance: SIMVASTATIN

REACTIONS (1)
  - Pulmonary arterial hypertension [None]

NARRATIVE: CASE EVENT DATE: 20190510
